FAERS Safety Report 15043849 (Version 2)
Quarter: 2018Q3

REPORT INFORMATION
  Report Type: Report from Study
  Country: US (occurrence: US)
  Receive Date: 20180621
  Receipt Date: 20180705
  Transmission Date: 20181010
  Serious: Yes (Hospitalization, Other)
  Sender: FDA-Public Use
  Company Number: US-GILEAD-2018-0332604

PATIENT
  Age: 63 Year
  Sex: Female
  Weight: 43.99 kg

DRUGS (5)
  1. IDELALISIB [Suspect]
     Active Substance: IDELALISIB
     Indication: B-CELL LYMPHOMA
  2. IDELALISIB [Suspect]
     Active Substance: IDELALISIB
     Indication: MANTLE CELL LYMPHOMA
     Dosage: 100 MG, BID
     Route: 065
     Dates: start: 201801
  3. RITUXAN [Concomitant]
     Active Substance: RITUXIMAB
     Indication: B-CELL LYMPHOMA
     Dosage: 500 MG, UNK
     Route: 042
     Dates: start: 20180616
  4. RITUXAN [Concomitant]
     Active Substance: RITUXIMAB
     Dosage: 500 MG, UNK
     Route: 042
     Dates: start: 20130506, end: 20140613
  5. IDELALISIB [Suspect]
     Active Substance: IDELALISIB
     Indication: ADULT T-CELL LYMPHOMA/LEUKAEMIA

REACTIONS (5)
  - Selective IgG subclass deficiency [Unknown]
  - Pneumonia [Recovered/Resolved]
  - Gastric ulcer [Not Recovered/Not Resolved]
  - Oesophageal discomfort [Not Recovered/Not Resolved]
  - Abdominal pain [Recovered/Resolved]

NARRATIVE: CASE EVENT DATE: 20180213
